FAERS Safety Report 4293153-X (Version None)
Quarter: 2004Q1

REPORT INFORMATION
  Report Type: 
  Country: None (occurrence: None)
  Receive Date: 20040212
  Receipt Date: 20030613
  Transmission Date: 20041129
  Serious: No
  Sender: FDA-Public Use
  Company Number: US-GLAXOSMITHKLINE-A0412455A

PATIENT
  Age: 47 Year
  Sex: Female

DRUGS (4)
  1. PAXIL [Suspect]
     Route: 048
  2. WELLBUTRIN SR [Suspect]
  3. LAMICTAL [Concomitant]
  4. LEXAPRO [Concomitant]

REACTIONS (1)
  - WEIGHT INCREASED [None]
